FAERS Safety Report 9259538 (Version 1)
Quarter: 2013Q2

REPORT INFORMATION
  Report Type: Spontaneous
  Country: CH (occurrence: CH)
  Receive Date: 20130429
  Receipt Date: 20130429
  Transmission Date: 20140414
  Serious: Yes (Hospitalization)
  Sender: FDA-Public Use
  Company Number: CH-009507513-1304CHE015060

PATIENT
  Age: 61 Year
  Sex: Male

DRUGS (3)
  1. FOSAMAX [Suspect]
     Indication: OSTEOPOROSIS
     Dosage: 70 MG, QW
     Route: 048
     Dates: start: 2005
  2. OMEPRAZOLE [Suspect]
     Dosage: UNK, QD
     Dates: start: 201206
  3. CALCIMAGON [Concomitant]
     Dosage: 1 G, QD

REACTIONS (1)
  - Pathological fracture [Recovered/Resolved]
